FAERS Safety Report 15731869 (Version 1)
Quarter: 2018Q4

REPORT INFORMATION
  Report Type: Spontaneous
  Country: DE (occurrence: DE)
  Receive Date: 20181217
  Receipt Date: 20181217
  Transmission Date: 20190205
  Serious: Yes (Hospitalization)
  Sender: FDA-Public Use
  Company Number: DE-MYLANLABS-2018M1090944

PATIENT
  Age: 55 Year
  Sex: Male

DRUGS (3)
  1. DIPROSONE /00582101/ [Suspect]
     Active Substance: BETAMETHASONE DIPROPIONATE\BETAMETHASONE SODIUM PHOSPHATE
     Indication: ALLERGY PROPHYLAXIS
     Dosage: MIXTURE OF BETAMETHASONE SODIUM PHOSPHATE AND BETAMETHASONE DIPROPIONATE ADMINISTERED INTO HIS BU...
     Route: 030
  2. TRIAMCINOLONE [Suspect]
     Active Substance: TRIAMCINOLONE
     Indication: CYSTOID MACULAR OEDEMA
     Dosage: ROUTE OF ADMINISTRATION: INTRAVITREAL
  3. BETAMETHASONE SODIUM PHOSPHATE [Concomitant]
     Active Substance: BETAMETHASONE SODIUM PHOSPHATE
     Indication: ALLERGY PROPHYLAXIS
     Dosage: MIXTURE OF BETAMETHASONE SODIUM PHOSPHATE AND BETAMETHASONE DIPROPIONATE ADMINISTERED INTO HIS BU...
     Route: 030

REACTIONS (2)
  - Off label use [Recovered/Resolved]
  - Intraocular pressure increased [Recovered/Resolved]
